FAERS Safety Report 24283808 (Version 5)
Quarter: 2025Q1

REPORT INFORMATION
  Report Type: Spontaneous
  Country: JP (occurrence: JP)
  Receive Date: 20240905
  Receipt Date: 20250326
  Transmission Date: 20250408
  Serious: Yes (Other)
  Sender: ASTELLAS
  Company Number: JP-ASTELLAS-2024-AER-000332

PATIENT
  Age: 57 Year
  Sex: Male

DRUGS (2)
  1. CRESEMBA [Suspect]
     Active Substance: ISAVUCONAZONIUM SULFATE
     Indication: Aspergilloma
     Dosage: 200 MILLIGRAM, Q8H
     Route: 048
     Dates: start: 20240709, end: 20240710
  2. CRESEMBA [Suspect]
     Active Substance: ISAVUCONAZONIUM SULFATE
     Dosage: 200 MILLIGRAM, QD
     Route: 048
     Dates: start: 20240711, end: 20240903

REACTIONS (10)
  - Hyperkalaemia [Recovered/Resolved]
  - Renal impairment [Recovered/Resolved]
  - Erectile dysfunction [Not Recovered/Not Resolved]
  - Malaise [Not Recovered/Not Resolved]
  - Hepatic function abnormal [Recovered/Resolved]
  - Depression [Recovered/Resolved]
  - Apathy [Recovered/Resolved]
  - Libido decreased [Recovered/Resolved]
  - Taste disorder [Recovered/Resolved]
  - Off label use [Unknown]

NARRATIVE: CASE EVENT DATE: 20240709
